FAERS Safety Report 23377721 (Version 1)
Quarter: 2024Q1

REPORT INFORMATION
  Report Type: Spontaneous
  Country: US (occurrence: US)
  Receive Date: 20240108
  Receipt Date: 20240108
  Transmission Date: 20240410
  Serious: No
  Sender: FDA-Public Use
  Company Number: US-SA-SAC20240105000105

PATIENT
  Age: 69 Year
  Sex: Female
  Weight: 79 kg

DRUGS (1)
  1. DUPIXENT [Suspect]
     Active Substance: DUPILUMAB
     Indication: Dermatitis atopic
     Dosage: 300 MG QOW (EVERY OTHER WEEK)
     Route: 058
     Dates: start: 202308

REACTIONS (4)
  - Movement disorder [Unknown]
  - Pain in jaw [Unknown]
  - Condition aggravated [Unknown]
  - Arthralgia [Unknown]

NARRATIVE: CASE EVENT DATE: 20230801
